FAERS Safety Report 5375578-4 (Version None)
Quarter: 2007Q2

REPORT INFORMATION
  Report Type: 
  Country: None (occurrence: None)
  Receive Date: 20070629
  Receipt Date: 20070619
  Transmission Date: 20071010
  Serious: Yes (Hospitalization)
  Sender: FDA-Public Use
  Company Number: DE-PFIZER INC-2007051495

PATIENT
  Sex: Male
  Weight: 82 kg

DRUGS (13)
  1. SU-011,248 [Suspect]
     Indication: METASTATIC RENAL CELL CARCINOMA
     Route: 048
     Dates: start: 20060407, end: 20060906
  2. NEBILET [Concomitant]
     Route: 048
  3. COAPROVEL [Concomitant]
     Route: 048
  4. VOLTAREN [Concomitant]
     Route: 048
  5. ZOMETA [Concomitant]
     Route: 042
  6. TRAMADOL HCL [Concomitant]
     Route: 048
  7. NOVALGIN [Concomitant]
     Route: 048
  8. PASPERTIN [Concomitant]
     Route: 048
  9. FURORESE [Concomitant]
     Route: 048
  10. REKAWAN [Concomitant]
     Route: 048
  11. VOMACUR [Concomitant]
     Route: 048
  12. MORPHINE SULFATE [Concomitant]
     Route: 048
  13. CIPROFLOXACIN [Concomitant]
     Route: 048

REACTIONS (1)
  - IMPAIRED HEALING [None]
